FAERS Safety Report 4428520-4 (Version None)
Quarter: 2004Q3

REPORT INFORMATION
  Report Type: 
  Country: None (occurrence: None)
  Receive Date: 20040813
  Receipt Date: 20040801
  Transmission Date: 20050211
  Serious: No
  Sender: FDA-Public Use
  Company Number: 04H-062-0269554-00

PATIENT

DRUGS (7)
  1. VECURONIUM BROMIDE [Suspect]
     Indication: ANAESTHESIA
  2. ETOMIDATE [Suspect]
     Indication: ANAESTHESIA
     Dosage: 0.3 MG/KG
  3. FENTANYL [Suspect]
     Indication: ANAESTHESIA
  4. ENFLURANE [Concomitant]
  5. NITROUS OXIDE [Concomitant]
  6. OXYGEN [Concomitant]
  7. K INOUE [Concomitant]

REACTIONS (2)
  - BRADYCARDIA [None]
  - DRUG INTERACTION [None]
